FAERS Safety Report 4882067-X (Version None)
Quarter: 2006Q1

REPORT INFORMATION
  Report Type: 
  Country: None (occurrence: None)
  Receive Date: 20060117
  Receipt Date: 20050125
  Transmission Date: 20060701
  Serious: Yes (Hospitalization, Other)
  Sender: FDA-Public Use
  Company Number: US-MERCK-0501USA04130

PATIENT
  Age: 66 Year
  Sex: Female
  Weight: 64 kg

DRUGS (14)
  1. VIOXX [Suspect]
     Indication: ARTHRITIS
     Route: 048
     Dates: start: 19990101, end: 20040930
  2. VIOXX [Suspect]
     Indication: PAIN
     Route: 048
     Dates: start: 19990101, end: 20040930
  3. PREVACID [Concomitant]
     Route: 065
  4. TEMAZEPAM [Concomitant]
     Route: 065
  5. AVALIDE [Concomitant]
     Route: 065
  6. FUROSEMIDE [Concomitant]
     Route: 065
  7. K-DUR 10 [Concomitant]
     Route: 065
  8. SYNTHROID [Concomitant]
     Route: 065
  9. PLAVIX [Concomitant]
     Route: 065
  10. COLCHICINE [Concomitant]
     Route: 065
  11. ALLOPURINOL [Concomitant]
     Route: 065
  12. INDOMETHACIN [Concomitant]
     Route: 065
  13. DIAZEPAM [Concomitant]
     Route: 065
  14. ADVAIR DISKUS 250/50 [Concomitant]
     Route: 065

REACTIONS (15)
  - ANGINA PECTORIS [None]
  - ASTHMA [None]
  - CATARACT [None]
  - CEREBROVASCULAR ACCIDENT [None]
  - CORONARY ARTERY DISEASE [None]
  - DEEP VEIN THROMBOSIS [None]
  - GASTRITIS [None]
  - INCISIONAL HERNIA [None]
  - INTERVERTEBRAL DISC PROTRUSION [None]
  - OSTEOARTHRITIS [None]
  - PERIPHERAL VASCULAR DISORDER [None]
  - PULMONARY EMBOLISM [None]
  - RENAL FAILURE CHRONIC [None]
  - THYROID DISORDER [None]
  - THYROID NEOPLASM [None]
